FAERS Safety Report 26099992 (Version 1)
Quarter: 2025Q4

REPORT INFORMATION
  Report Type: Spontaneous
  Country: US (occurrence: US)
  Receive Date: 20251128
  Receipt Date: 20251128
  Transmission Date: 20260117
  Serious: Yes (Hospitalization, Other)
  Sender: PROCTER AND GAMBLE
  Company Number: US-PROCTER+GAMBLE-PH25020529

PATIENT
  Age: 59 Year
  Sex: Female

DRUGS (2)
  1. ACETAMINOPHEN [Suspect]
     Active Substance: ACETAMINOPHEN
     Dosage: 162500 MILLIGRAM, 1 ONLY
  2. NAPROXEN [Concomitant]
     Active Substance: NAPROXEN
     Dosage: UNK

REACTIONS (12)
  - Intentional overdose [Unknown]
  - Toxicity to various agents [Unknown]
  - Intentional product use issue [Unknown]
  - Duodenal ulcer [Unknown]
  - Gastrointestinal fistula [Unknown]
  - Gastric ulcer haemorrhage [Unknown]
  - Haematemesis [Unknown]
  - Depressed level of consciousness [Unknown]
  - Aspartate aminotransferase increased [Unknown]
  - Alanine aminotransferase increased [Unknown]
  - International normalised ratio increased [Unknown]
  - Haemoglobin decreased [Unknown]
